FAERS Safety Report 7611448-6 (Version None)
Quarter: 2011Q3

REPORT INFORMATION
  Report Type: 
  Country: None (occurrence: None)
  Receive Date: 20110715
  Receipt Date: 20110708
  Transmission Date: 20111222
  Serious: Yes (Other)
  Sender: FDA-Public Use
  Company Number: US-ROCHE-788953

PATIENT
  Sex: Female

DRUGS (2)
  1. BONIVA [Suspect]
     Route: 065
  2. FOSAMAX [Concomitant]

REACTIONS (2)
  - JAW DISORDER [None]
  - ORAL INFECTION [None]
